FAERS Safety Report 5819908-5 (Version None)
Quarter: 2008Q3

REPORT INFORMATION
  Report Type: 
  Country: None (occurrence: None)
  Receive Date: 20080717
  Receipt Date: 20080707
  Transmission Date: 20090109
  Serious: Yes (Hospitalization)
  Sender: FDA-Public Use
  Company Number: 2008AL004861

PATIENT
  Age: 93 Year
  Sex: Female
  Weight: 52.1637 kg

DRUGS (7)
  1. DIGOXIN [Suspect]
     Indication: CARDIAC DISORDER
     Dosage: 0.25MG DAILY PO
     Route: 048
     Dates: start: 20060701, end: 20080502
  2. METOPROLOL TARTRATE [Concomitant]
  3. COUMADIN [Concomitant]
  4. FUROSEMIDE [Concomitant]
  5. KEPPRA [Concomitant]
  6. PROVIGIL [Concomitant]
  7. OMEPRAZOLE [Concomitant]

REACTIONS (5)
  - ASTHENIA [None]
  - CARDIOACTIVE DRUG LEVEL INCREASED [None]
  - CONVULSION [None]
  - DIARRHOEA [None]
  - PULMONARY OEDEMA [None]
